FAERS Safety Report 8337916-X (Version None)
Quarter: 2012Q2

REPORT INFORMATION
  Report Type: 
  Country: None (occurrence: None)
  Receive Date: 20120504
  Receipt Date: 20120425
  Transmission Date: 20120825
  Serious: Yes (Other)
  Sender: FDA-Public Use
  Company Number: US-ASTRAZENECA-2010SE06559

PATIENT
  Age: 66 Year
  Sex: Female
  Weight: 54.4 kg

DRUGS (13)
  1. GLUCOPHAGE [Concomitant]
     Indication: DIABETES MELLITUS
  2. LANTUS [Concomitant]
     Indication: DIABETES MELLITUS
  3. CRESTOR [Suspect]
     Indication: BLOOD CHOLESTEROL INCREASED
     Route: 048
  4. LIPITOR [Suspect]
  5. PRILOSEC [Concomitant]
     Indication: HIATUS HERNIA
  6. CRESTOR [Suspect]
     Route: 048
  7. PLAVIX [Concomitant]
  8. INSULIN [Concomitant]
     Indication: DIABETES MELLITUS
  9. METOPROLOL TARTRATE [Suspect]
     Route: 048
  10. BENECAR [Concomitant]
  11. ASPIRIN [Concomitant]
  12. TOPAMAX [Suspect]
  13. LIPITOR [Suspect]
     Indication: BLOOD CHOLESTEROL INCREASED

REACTIONS (7)
  - MYOCARDIAL INFARCTION [None]
  - NAUSEA [None]
  - PERIPHERAL COLDNESS [None]
  - NEPHROLITHIASIS [None]
  - CYSTITIS [None]
  - MYALGIA [None]
  - URETHRAL HAEMORRHAGE [None]
